FAERS Safety Report 11745790 (Version 1)
Quarter: 2015Q4

REPORT INFORMATION
  Report Type: Spontaneous
  Country: US (occurrence: US)
  Receive Date: 20151117
  Receipt Date: 20151117
  Transmission Date: 20160304
  Serious: Yes (Other)
  Sender: FDA-Public Use
  Company Number: US-TEVA-607415USA

PATIENT
  Sex: Female
  Weight: 43.13 kg

DRUGS (3)
  1. MEDROXYPROGESTERONE [Suspect]
     Active Substance: MEDROXYPROGESTERONE
     Dosage: DAY 16 TO 25
     Route: 065
  2. PREMARIN [Suspect]
     Active Substance: ESTROGENS, CONJUGATED
     Dosage: 2 TABLETS 4 TIMES ADAY, DAY 1 TO 25
     Route: 065
     Dates: end: 2009
  3. ESTRADIOL. [Suspect]
     Active Substance: ESTRADIOL
     Route: 065
     Dates: start: 2009

REACTIONS (10)
  - Muscle atrophy [Unknown]
  - Weight gain poor [Not Recovered/Not Resolved]
  - Fluid retention [Unknown]
  - Asthenia [Unknown]
  - Constipation [Unknown]
  - Weight decreased [Unknown]
  - Bipolar I disorder [Unknown]
  - Breast atrophy [Unknown]
  - Hormone level abnormal [Unknown]
  - Decreased appetite [Unknown]
